FAERS Safety Report 8593092-X (Version None)
Quarter: 2012Q3

REPORT INFORMATION
  Report Type: 
  Country: None (occurrence: None)
  Receive Date: 20120814
  Receipt Date: 20120417
  Transmission Date: 20120928
  Serious: Yes (Other)
  Sender: FDA-Public Use
  Company Number: US-BRISTOL-MYERS SQUIBB COMPANY-16529695

PATIENT
  Sex: Male

DRUGS (6)
  1. ZERIT [Suspect]
  2. REYATAZ [Suspect]
  3. LOVAZA [Concomitant]
  4. FISH OIL [Concomitant]
  5. VITAMIN D [Concomitant]
  6. VITAMIN A PALMITATE [Concomitant]

REACTIONS (1)
  - T-LYMPHOCYTE COUNT DECREASED [None]
